FAERS Safety Report 20343574 (Version 1)
Quarter: 2022Q1

REPORT INFORMATION
  Report Type: Report from Study
  Country: ES (occurrence: ES)
  Receive Date: 20220118
  Receipt Date: 20220118
  Transmission Date: 20220423
  Serious: Yes (Hospitalization, Other)
  Sender: FDA-Public Use
  Company Number: ES-GRUNENTHAL-2022-100285

PATIENT
  Age: 78 Year
  Sex: Female

DRUGS (2)
  1. QUTENZA [Suspect]
     Active Substance: CAPSAICIN
     Indication: Arthralgia
     Dosage: 1 DOSAGE FORM
     Route: 065
     Dates: start: 20211117
  2. MORPHINE [Concomitant]
     Active Substance: MORPHINE
     Indication: Product used for unknown indication
     Dosage: 5 MILLIGRAM, 2/DAY
     Route: 065

REACTIONS (3)
  - Pulmonary oedema [Unknown]
  - Arthralgia [Unknown]
  - General physical health deterioration [Not Recovered/Not Resolved]
